FAERS Safety Report 5245290-0 (Version None)
Quarter: 2007Q1

REPORT INFORMATION
  Report Type: 
  Country: None (occurrence: None)
  Receive Date: 20070223
  Receipt Date: 20070208
  Transmission Date: 20070707
  Serious: No
  Sender: FDA-Public Use
  Company Number: 2007-001231

PATIENT
  Age: 45 Year
  Sex: Female
  Weight: 61 kg

DRUGS (18)
  1. FLOLAN [Suspect]
     Indication: PULMONARY HYPERTENSION
     Dosage: 90NGKM UNKNOWN
     Route: 042
     Dates: start: 20000201
  2. LACTAID [Concomitant]
     Dosage: 2TAB AS REQUIRED
     Route: 048
  3. PREVACID [Concomitant]
     Dosage: 30MG TWICE PER DAY
     Route: 048
  4. DIGITEK [Concomitant]
     Dosage: .125MG PER DAY
     Route: 048
  5. BUMETANIDE [Concomitant]
     Route: 048
  6. COUMADIN [Concomitant]
     Route: 048
  7. POTASSIUM CHLORIDE [Concomitant]
     Dosage: 10MEQ AS DIRECTED
     Route: 048
  8. TYLENOL [Concomitant]
     Dosage: 650MG AS REQUIRED
     Route: 048
  9. IMODIUM [Concomitant]
     Dosage: 2MG AS REQUIRED
     Route: 048
  10. COUMADIN [Concomitant]
     Route: 048
  11. ZAROXOLYN [Concomitant]
     Dosage: 5MG PER DAY
     Route: 048
  12. METOLAZONE [Concomitant]
     Dosage: 2.5MG PER DAY
     Route: 048
  13. UNKNOWN MEDICATION [Concomitant]
  14. SPIRONOLACTONE [Concomitant]
     Dosage: 25MG PER DAY
     Route: 048
  15. PROMETHAZINE [Concomitant]
     Dosage: 25MG AS REQUIRED
     Route: 048
  16. VIAGRA [Concomitant]
     Dosage: 50MG PER DAY
     Route: 048
  17. CEPHALEXIN [Concomitant]
     Dosage: 500MG FOUR TIMES PER DAY
     Route: 048
  18. ROBITUSSIN [Concomitant]
     Dosage: 2TSP AS REQUIRED
     Route: 048

REACTIONS (2)
  - CATHETER RELATED COMPLICATION [None]
  - PHARMACEUTICAL PRODUCT COMPLAINT [None]
